FAERS Safety Report 12631554 (Version 2)
Quarter: 2016Q3

REPORT INFORMATION
  Report Type: Spontaneous
  Country: US (occurrence: US)
  Receive Date: 20160808
  Receipt Date: 20160808
  Transmission Date: 20161109
  Serious: No
  Sender: FDA-Public Use
  Company Number: US-BEH-2015054616

PATIENT
  Sex: Female
  Weight: 50 kg

DRUGS (21)
  1. OTHER MINERAL SUPPLEMENTS [Concomitant]
     Active Substance: MINERALS
  2. MAGNESIUM [Concomitant]
     Active Substance: MAGNESIUM
  3. PROMETHAZINE [Concomitant]
     Active Substance: PROMETHAZINE\PROMETHAZINE HYDROCHLORIDE
  4. VITAMIN B [Concomitant]
     Active Substance: VITAMIN B
  5. ALBUTEROL. [Concomitant]
     Active Substance: ALBUTEROL
  6. HIZENTRA [Suspect]
     Active Substance: HUMAN IMMUNOGLOBULIN G
     Route: 058
  7. ACETAMINOPHEN. [Concomitant]
     Active Substance: ACETAMINOPHEN
  8. L-GLUTAMINE [Concomitant]
  9. PATADAY [Concomitant]
     Active Substance: OLOPATADINE HYDROCHLORIDE
  10. VALTREX [Concomitant]
     Active Substance: VALACYCLOVIR HYDROCHLORIDE
  11. MIRALAX [Concomitant]
     Active Substance: POLYETHYLENE GLYCOL 3350
  12. LIDOCAINE. [Concomitant]
     Active Substance: LIDOCAINE
  13. CLEAR EYE COMPLETE [Concomitant]
  14. CHLORTABS [Concomitant]
     Active Substance: CHLORPHENIRAMINE MALEATE
  15. LICORICE. [Concomitant]
     Active Substance: LICORICE
  16. HIZENTRA [Suspect]
     Active Substance: HUMAN IMMUNOGLOBULIN G
     Indication: HYPOGAMMAGLOBULINAEMIA
     Route: 058
  17. DIPHENHYDRAMINE. [Concomitant]
     Active Substance: DIPHENHYDRAMINE
  18. EPIPEN [Concomitant]
     Active Substance: EPINEPHRINE
  19. OTHER MINERAL SUPPLEMENTS [Concomitant]
     Active Substance: MINERALS
  20. KLONOPIN [Concomitant]
     Active Substance: CLONAZEPAM
  21. FIORINAL [Concomitant]
     Active Substance: ASPIRIN\BUTALBITAL\CAFFEINE

REACTIONS (6)
  - Fatigue [Unknown]
  - Influenza like illness [Unknown]
  - Cough [Unknown]
  - Pain [Unknown]
  - Lethargy [Unknown]
  - Headache [Unknown]
